FAERS Safety Report 8343483-7 (Version None)
Quarter: 2012Q2

REPORT INFORMATION
  Report Type: 
  Country: None (occurrence: None)
  Receive Date: 20120504
  Receipt Date: 20120427
  Transmission Date: 20120825
  Serious: Yes (Hospitalization)
  Sender: FDA-Public Use
  Company Number: 133285

PATIENT
  Age: 31 Year
  Sex: Female

DRUGS (1)
  1. LEUCOVORIN CALCIUM [Suspect]
     Indication: GASTROINTESTINAL CARCINOMA
     Dosage: 656MG, 644MG IV
     Route: 042
     Dates: start: 20111026, end: 20120315

REACTIONS (4)
  - GASTROINTESTINAL HAEMORRHAGE [None]
  - INFECTION [None]
  - HAEMOGLOBIN DECREASED [None]
  - PULMONARY EMBOLISM [None]
